FAERS Safety Report 5894789-2 (Version None)
Quarter: 2008Q3

REPORT INFORMATION
  Report Type: 
  Country: None (occurrence: None)
  Receive Date: 20080924
  Receipt Date: 20080619
  Transmission Date: 20090109
  Serious: No
  Sender: FDA-Public Use
  Company Number: US-ASTRAZENECA-2008UW12403

PATIENT
  Age: 27 Year
  Sex: Female
  Weight: 63.5 kg

DRUGS (3)
  1. SEROQUEL [Suspect]
     Indication: BIPOLAR DISORDER
     Route: 048
     Dates: start: 20080301
  2. SEROQUEL [Suspect]
     Indication: SCHIZOPHRENIA
     Route: 048
     Dates: start: 20080301
  3. REQUIP [Concomitant]

REACTIONS (2)
  - FEELING HOT [None]
  - RESTLESS LEGS SYNDROME [None]
